FAERS Safety Report 9796869 (Version 1)
Quarter: 2014Q1

REPORT INFORMATION
  Report Type: Spontaneous
  Country: GB (occurrence: GB)
  Receive Date: 20140103
  Receipt Date: 20140103
  Transmission Date: 20141002
  Serious: Yes (Other)
  Sender: FDA-Public Use
  Company Number: GB-JNJFOC-20131212792

PATIENT
  Age: 69 Year
  Sex: Female

DRUGS (3)
  1. SUDAFED [Suspect]
     Route: 065
  2. SUDAFED [Suspect]
     Indication: PRODUCT USED FOR UNKNOWN INDICATION
     Route: 065
  3. AVASTIN [Interacting]
     Indication: OVARIAN CANCER
     Route: 065

REACTIONS (3)
  - Epilepsy [Unknown]
  - Hypertension [Unknown]
  - Drug interaction [Unknown]
